FAERS Safety Report 6204799-3 (Version None)
Quarter: 2009Q2

REPORT INFORMATION
  Report Type: 
  Country: None (occurrence: None)
  Receive Date: 20090527
  Receipt Date: 20090518
  Transmission Date: 20091009
  Serious: Yes (Hospitalization)
  Sender: FDA-Public Use
  Company Number: PHHO2009US05110

PATIENT
  Sex: Male
  Weight: 91.4 kg

DRUGS (3)
  1. RAD 666 RAD+TAB [Suspect]
     Indication: NEOPLASM MALIGNANT
     Dosage: 50MG
     Route: 048
     Dates: start: 20090330, end: 20090406
  2. RAD 666 RAD+TAB [Suspect]
     Dosage: UNK
     Dates: start: 20090428
  3. EPO 906 [Suspect]
     Indication: NEOPLASM MALIGNANT
     Dosage: UNK
     Route: 042
     Dates: start: 20090330, end: 20090406

REACTIONS (7)
  - CONTRAST MEDIA REACTION [None]
  - DEHYDRATION [None]
  - DIARRHOEA [None]
  - NAUSEA [None]
  - ORTHOSTATIC HYPOTENSION [None]
  - PNEUMATOSIS INTESTINALIS [None]
  - VOMITING [None]
